FAERS Safety Report 9871208 (Version 2)
Quarter: 2014Q2

REPORT INFORMATION
  Report Type: Report from Study
  Country: BR (occurrence: BR)
  Receive Date: 20140205
  Receipt Date: 20140429
  Transmission Date: 20141212
  Serious: Yes (Disabling, Other)
  Sender: FDA-Public Use
  Company Number: PHHY2014BR013243

PATIENT
  Age: 57 Year
  Sex: Male
  Weight: 62 kg

DRUGS (3)
  1. GILENYA [Suspect]
     Indication: MULTIPLE SCLEROSIS
     Dosage: 1 DF, QD
     Route: 048
  2. GILENYA [Suspect]
     Dosage: 1 DF, QD
     Route: 048
  3. DIAZEPAM [Concomitant]
     Dosage: 1 DF, DAILY
     Route: 048

REACTIONS (4)
  - Hemiplegia [Not Recovered/Not Resolved]
  - Tracheal disorder [Recovering/Resolving]
  - Abasia [Not Recovered/Not Resolved]
  - Pneumonia aspiration [Recovered/Resolved]
